FAERS Safety Report 25862777 (Version 2)
Quarter: 2025Q4

REPORT INFORMATION
  Report Type: Spontaneous
  Country: MK (occurrence: MK)
  Receive Date: 20250930
  Receipt Date: 20251014
  Transmission Date: 20260117
  Serious: Yes (Death, Life-Threatening, Hospitalization)
  Sender: STRIDES
  Company Number: None

PATIENT
  Age: 41 Year
  Sex: Male
  Weight: 85 kg

DRUGS (8)
  1. PREDNISOLONE [Suspect]
     Active Substance: PREDNISOLONE
     Indication: Immunosuppressant drug therapy
     Dosage: 20 MILLIGRAM, QD
     Route: 065
     Dates: start: 2019
  2. PREDNISOLONE [Suspect]
     Active Substance: PREDNISOLONE
     Dosage: 7.5 MILLIGRAM, QD 1X 7.5MG DAILY  TABLET
     Route: 065
     Dates: start: 2019
  3. TACROLIMUS [Suspect]
     Active Substance: TACROLIMUS
     Indication: Immunosuppressant drug therapy
     Dosage: UNK
     Route: 065
     Dates: start: 2019
  4. TACROLIMUS [Suspect]
     Active Substance: TACROLIMUS
     Dosage: 1 MILLIGRAM, QD TACROLIMUS A 1MG/0.5MG - 1MG MORING AND 1.5MG AT NIGHT   TABLET
     Route: 065
     Dates: start: 2019
  5. TACROLIMUS [Suspect]
     Active Substance: TACROLIMUS
     Dosage: 1 MILLIGRAM, QD TACROLIMUS A 1MG/0.5MG - 1MG MORING AND 1.5MG AT NIGHT   TABLET
     Route: 065
     Dates: start: 2019
  6. TACROLIMUS [Suspect]
     Active Substance: TACROLIMUS
     Indication: Immunosuppressant drug therapy
     Dosage: 0.5 MILLIGRAM, QD TACROLIMUS A 1MG/0.5MG - 1MG MORING AND 1.5MG AT NIGHT  TABLET
     Route: 065
     Dates: start: 2019
  7. MYCOPHENOLIC ACID [Suspect]
     Active Substance: MYCOPHENOLIC ACID
     Indication: Immunosuppressant drug therapy
     Dosage: UNK
     Route: 065
     Dates: start: 2019, end: 202409
  8. MYCOPHENOLIC ACID [Suspect]
     Active Substance: MYCOPHENOLIC ACID
     Dosage: 1000 MILLIGRAM, QD 500MG - 2X1000MG, TABLET
     Route: 065
     Dates: start: 2019, end: 202409

REACTIONS (5)
  - Cardiac failure acute [Fatal]
  - Pulmonary oedema [Fatal]
  - Plasma cell myeloma [Unknown]
  - Organic brain syndrome [Unknown]
  - Off label use [Unknown]

NARRATIVE: CASE EVENT DATE: 20240101
